FAERS Safety Report 23112402 (Version 1)
Quarter: 2023Q4

REPORT INFORMATION
  Report Type: Report from Study
  Country: US (occurrence: US)
  Receive Date: 20231027
  Receipt Date: 20231027
  Transmission Date: 20240110
  Serious: Yes (Other)
  Sender: FDA-Public Use
  Company Number: US-ABBVIE-5465765

PATIENT
  Sex: Female

DRUGS (1)
  1. RINVOQ [Suspect]
     Active Substance: UPADACITINIB
     Indication: Eczema
     Dosage: EXTENDED RELEASE, FORM STRENGTH 15 MILLIGRAM
     Route: 048
     Dates: start: 20230908

REACTIONS (4)
  - Hysterectomy [Unknown]
  - Dermatitis atopic [Recovered/Resolved]
  - Pain [Unknown]
  - Skin fissures [Unknown]

NARRATIVE: CASE EVENT DATE: 20230101
